FAERS Safety Report 8199484-5 (Version None)
Quarter: 2012Q1

REPORT INFORMATION
  Report Type: 
  Country: None (occurrence: None)
  Receive Date: 20120309
  Receipt Date: 20120226
  Transmission Date: 20120608
  Serious: Yes (Other)
  Sender: FDA-Public Use
  Company Number: US-ROCHE-1043978

PATIENT
  Sex: Female

DRUGS (4)
  1. KLONOPIN [Suspect]
     Indication: PANIC DISORDER
  2. HEART MEDICATION [Concomitant]
  3. VITAMIN TAB [Concomitant]
  4. INSULIN [Concomitant]

REACTIONS (18)
  - WITHDRAWAL SYNDROME [None]
  - MYOCARDIAL INFARCTION [None]
  - CONFUSIONAL STATE [None]
  - MEMORY IMPAIRMENT [None]
  - VIRAL INFECTION [None]
  - ANGER [None]
  - INFECTION [None]
  - SUICIDAL IDEATION [None]
  - FEELING ABNORMAL [None]
  - AMNESIA [None]
  - TYPE 1 DIABETES MELLITUS [None]
  - IMPAIRED WORK ABILITY [None]
  - UNEVALUABLE EVENT [None]
  - PANIC ATTACK [None]
  - INSOMNIA [None]
  - CONVERSION DISORDER [None]
  - DEMENTIA [None]
  - MENTAL DISORDER [None]
